FAERS Safety Report 7348212-1 (Version None)
Quarter: 2011Q1

REPORT INFORMATION
  Report Type: 
  Country: None (occurrence: None)
  Receive Date: 20110311
  Receipt Date: 20110209
  Transmission Date: 20110831
  Serious: No
  Sender: FDA-Public Use
  Company Number: US-BAYER-2011-014966

PATIENT
  Sex: Female
  Weight: 73 kg

DRUGS (10)
  1. OMEPRAZOLE [Concomitant]
  2. DETROL LA [Concomitant]
  3. CALCIUM D [Concomitant]
  4. ALEVE (CAPLET) [Suspect]
     Indication: ANALGESIC THERAPY
     Dosage: 1 DF, QD
     Route: 048
  5. FISH OIL [Concomitant]
  6. POTASSIUM CHLORIDE [Concomitant]
  7. DYAZIDE [Concomitant]
  8. LIPITOR [Concomitant]
  9. ZYRTEC [Concomitant]
  10. MULTI-VITAMIN [Concomitant]

REACTIONS (2)
  - ARTHRALGIA [None]
  - NO ADVERSE EVENT [None]
